FAERS Safety Report 6362435-X (Version None)
Quarter: 2009Q3

REPORT INFORMATION
  Report Type: 
  Country: None (occurrence: None)
  Receive Date: 20090918
  Receipt Date: 20090601
  Transmission Date: 20100115
  Serious: No
  Sender: FDA-Public Use
  Company Number: US-ABBOTT-09P-163-0577451-00

PATIENT
  Sex: Female
  Weight: 145.28 kg

DRUGS (1)
  1. HUMIRA [Suspect]
     Indication: PSORIASIS
     Route: 058
     Dates: start: 20081201

REACTIONS (1)
  - WRONG TECHNIQUE IN DRUG USAGE PROCESS [None]
